FAERS Safety Report 7617927-X (Version None)
Quarter: 2011Q3

REPORT INFORMATION
  Report Type: 
  Country: None (occurrence: None)
  Receive Date: 20110718
  Receipt Date: 20110704
  Transmission Date: 20111222
  Serious: Yes (Other)
  Sender: FDA-Public Use
  Company Number: PHHY2011BR50567

PATIENT
  Sex: Female

DRUGS (2)
  1. DIOVAN HCT [Suspect]
     Indication: HYPERTENSION
     Dosage: 1 DF (80 MG VALSARTAN/12.5 MG HYDROCHLOROTHIAZIDE), DAILY
     Route: 048
  2. DIOVAN HCT [Suspect]
     Dosage: 1 DF (80 MG VALSARTAN/12.5 MG HYDROCHLOROTHIAZIDE), DAILY
     Route: 048
     Dates: start: 20110704

REACTIONS (7)
  - HYPERTENSION [None]
  - HEADACHE [None]
  - PAIN IN EXTREMITY [None]
  - OCULAR HYPERAEMIA [None]
  - CEREBROVASCULAR ACCIDENT [None]
  - CONVULSION [None]
  - DRUG HYPERSENSITIVITY [None]
